FAERS Safety Report 5398841-X (Version None)
Quarter: 2007Q3

REPORT INFORMATION
  Report Type: 
  Country: None (occurrence: None)
  Receive Date: 20070727
  Receipt Date: 20070723
  Transmission Date: 20080115
  Serious: Yes (Hospitalization)
  Sender: FDA-Public Use
  Company Number: PHBS2006BR09759

PATIENT
  Age: 34 Year
  Sex: Male
  Weight: 83 kg

DRUGS (1)
  1. TRILEPTAL [Suspect]
     Indication: EPILEPSY
     Dosage: 300 MG, QHS
     Route: 048
     Dates: end: 20070101

REACTIONS (6)
  - ADMINISTRATION SITE PAIN [None]
  - CONVULSION [None]
  - FALL [None]
  - HEAD INJURY [None]
  - MEMORY IMPAIRMENT [None]
  - SOMNOLENCE [None]
